FAERS Safety Report 15120573 (Version 1)
Quarter: 2018Q3

REPORT INFORMATION
  Report Type: Spontaneous
  Country: SE (occurrence: SE)
  Receive Date: 20180709
  Receipt Date: 20180709
  Transmission Date: 20181010
  Serious: Yes (Other)
  Sender: FDA-Public Use
  Company Number: SE-009507513-1807SWE001252

PATIENT
  Age: 24 Year
  Sex: Female

DRUGS (4)
  1. MOMETASONE FUROATE. [Suspect]
     Active Substance: MOMETASONE FUROATE
     Dates: start: 20180608
  2. REMSIMA [Concomitant]
     Active Substance: INFLIXIMAB
     Dosage: 100 MG POWDER FOR CONCENTRATE FOR SOLUTION FOR INFUSION, UNK
  3. PURINETHOL [Concomitant]
     Active Substance: MERCAPTOPURINE
     Dosage: TABLET, UNK
  4. PENTASA [Concomitant]
     Active Substance: MESALAMINE
     Dosage: SACHET 2 G PROLONGED RELEASE GRANULES, UNK

REACTIONS (4)
  - Acne [Recovered/Resolved]
  - Dizziness [Recovered/Resolved]
  - Pharyngeal oedema [Recovered/Resolved]
  - Nausea [Recovered/Resolved]

NARRATIVE: CASE EVENT DATE: 20180608
